FAERS Safety Report 14583111 (Version 1)
Quarter: 2018Q1

REPORT INFORMATION
  Report Type: Spontaneous
  Country: US (occurrence: US)
  Receive Date: 20180228
  Receipt Date: 20180228
  Transmission Date: 20180509
  Serious: Yes (Disabling)
  Sender: FDA-Public Use
  Company Number: None

PATIENT
  Age: 82 Year
  Sex: Male
  Weight: 72.58 kg

DRUGS (25)
  1. LISINOPRIL/HCTZ 20/12.5 [Concomitant]
     Indication: BLOOD PRESSURE MEASUREMENT
     Dosage: 20/12.5 1 TABLET/AM
  2. LINZESS [Concomitant]
     Active Substance: LINACLOTIDE
  3. HERBA VISION [Concomitant]
  4. SIMBRINZA [Suspect]
     Active Substance: BRIMONIDINE TARTRATE\BRINZOLAMIDE
     Indication: INTRAOCULAR PRESSURE INCREASED
     Route: 047
     Dates: start: 20171111
  5. VITAMIN A [Concomitant]
     Active Substance: VITAMIN A
  6. VITAMIN B [Concomitant]
     Active Substance: VITAMIN B
  7. VITAMIN B COMPLEX [Concomitant]
     Active Substance: CYANOCOBALAMIN\DEXPANTHENOL\NIACINAMIDE\PYRIDOXINE HYDROCHLORIDE\RIBOFLAVIN 5^-PHOSPHATE SODIUM\THIAMINE HYDROCHLORIDE\VITAMIN B COMPLEX
     Indication: NEUROPATHY PERIPHERAL
     Dosage: 1/DAY AM
  8. ALPHA LIPOIC ACID 300MG [Concomitant]
     Indication: NEUROPATHY PERIPHERAL
     Dosage: 300MG AM + 300MG PM
  9. FISH OIL [Concomitant]
     Active Substance: FISH OIL
  10. AMLODIPINE BESYLATE 2.5MG [Concomitant]
     Indication: BLOOD PRESSURE MEASUREMENT
     Dosage: 1 PER DAY AFTER BREAKFAST
  11. XANAX [Concomitant]
     Active Substance: ALPRAZOLAM
     Indication: TINNITUS
  12. OIL OF OREGANO [Concomitant]
  13. FISH OIL [Concomitant]
     Active Substance: FISH OIL
  14. MAGNESIUM [Concomitant]
     Active Substance: MAGNESIUM
  15. XANAX XR 0.5 MG [Concomitant]
     Indication: TINNITUS
     Dosage: 0.5 MG 1/AM + 1/PM
  16. AMIODARONE [Concomitant]
     Active Substance: AMIODARONE
     Indication: ATRIAL FIBRILLATION
     Dosage: 200 MG/AM + 100MG/PM
  17. DILTIAZEM ER 120 MG [Concomitant]
     Indication: ATRIAL FIBRILLATION
  18. VITAMIN A [Concomitant]
     Active Substance: VITAMIN A
  19. VITAMIN D [Concomitant]
     Active Substance: CHOLECALCIFEROL
  20. LISINOPRIL. [Concomitant]
     Active Substance: LISINOPRIL
     Indication: BLOOD PRESSURE MEASUREMENT
     Dosage: 20MG 1 TABLET/PM
  21. VITAMIN D 5000 IU [Concomitant]
  22. MAGNESIUM [Concomitant]
     Active Substance: MAGNESIUM
  23. FLAXSEED [Concomitant]
     Active Substance: FLAX SEED
  24. ASPIRIN .81MG [Concomitant]
     Indication: ATRIAL FIBRILLATION
  25. VITAMIN B12 [Concomitant]
     Active Substance: CYANOCOBALAMIN
     Indication: NEUROPATHY PERIPHERAL
     Dosage: 1000MCG/AM AND 1000MCG/PM

REACTIONS (37)
  - Ocular hyperaemia [None]
  - Eye irritation [None]
  - Asthenia [None]
  - Lacrimation increased [None]
  - Eye discharge [None]
  - Eye swelling [None]
  - Gastrointestinal tract irritation [None]
  - Sneezing [None]
  - Nasal congestion [None]
  - Somnolence [None]
  - Dysgeusia [None]
  - Dizziness [None]
  - Eye pain [None]
  - Impaired quality of life [None]
  - Conjunctivitis allergic [None]
  - Headache [None]
  - Night blindness [None]
  - Dry mouth [None]
  - Dermatitis [None]
  - Erythema [None]
  - Conjunctivitis [None]
  - Fluid retention [None]
  - Nausea [None]
  - Nasal inflammation [None]
  - Corneal erosion [None]
  - Conjunctival haemorrhage [None]
  - Blepharitis [None]
  - Glare [None]
  - Hypersensitivity [None]
  - Impaired driving ability [None]
  - Eye pruritus [None]
  - Depression [None]
  - Ocular discomfort [None]
  - Keratitis [None]
  - Myalgia [None]
  - Visual impairment [None]
  - Vomiting [None]

NARRATIVE: CASE EVENT DATE: 20171111
